FAERS Safety Report 7154659-9 (Version None)
Quarter: 2010Q4

REPORT INFORMATION
  Report Type: 
  Country: None (occurrence: None)
  Receive Date: 20101214
  Receipt Date: 20091104
  Transmission Date: 20110411
  Serious: No
  Sender: FDA-Public Use
  Company Number: US-AMGEN-KDL373066

PATIENT

DRUGS (2)
  1. ENBREL [Suspect]
     Indication: RHEUMATOID ARTHRITIS
     Dosage: 50 MG, QWK
     Route: 058
     Dates: start: 20090924
  2. PREDNISONE [Concomitant]

REACTIONS (12)
  - ACROCHORDON [None]
  - EYELID INFECTION [None]
  - GLOSSITIS [None]
  - GLOSSODYNIA [None]
  - MASTICATION DISORDER [None]
  - MOUTH ULCERATION [None]
  - OROPHARYNGEAL PAIN [None]
  - PAIN [None]
  - POOR QUALITY SLEEP [None]
  - RHEUMATOID ARTHRITIS [None]
  - SALIVARY GLAND DISORDER [None]
  - TONGUE DISORDER [None]
